FAERS Safety Report 7347183-1 (Version None)
Quarter: 2011Q1

REPORT INFORMATION
  Report Type: 
  Country: None (occurrence: None)
  Receive Date: 20110303
  Receipt Date: 20110216
  Transmission Date: 20110831
  Serious: Yes (Other)
  Sender: FDA-Public Use
  Company Number: JPI-P-013966

PATIENT
  Age: 48 Year
  Sex: Female
  Weight: 68.0396 kg

DRUGS (16)
  1. FLUTICASONE PROPIONATE [Concomitant]
  2. ALBUTEROL [Concomitant]
  3. POTASSIUM CHLORIDE [Concomitant]
  4. HYDROCODONE BITARTRATE [Concomitant]
  5. XYREM [Suspect]
     Indication: CATAPLEXY
     Dosage: (2 IN 1 D), ORAL; (6.5 GM FIRST DOSE/4.5 GM SECOND DOSE), ORAL
     Route: 048
     Dates: start: 20051201
  6. AZELASTINE HCL [Concomitant]
  7. TIOTROPIUM BROMIDE [Concomitant]
  8. FENOFIBRATE [Concomitant]
  9. ESOMEPRAZOLE MAGNESIUM [Concomitant]
  10. DICYCLOMINE [Concomitant]
  11. IRON [Concomitant]
  12. CETIRIZINE [Concomitant]
  13. MONTELUKAST SODIUM [Concomitant]
  14. DEXTROAMPHETAMINE AND AMPHETAMINE [Concomitant]
  15. SUCRALFATE [Concomitant]
  16. LOPERAMIDE HCL [Concomitant]

REACTIONS (5)
  - DEPRESSION [None]
  - SOMNAMBULISM [None]
  - BLOOD PRESSURE INCREASED [None]
  - BREAST CANCER [None]
  - FALL [None]
